FAERS Safety Report 24238213 (Version 1)
Quarter: 2024Q3

REPORT INFORMATION
  Report Type: Spontaneous
  Country: ZA (occurrence: None)
  Receive Date: 20240822
  Receipt Date: 20240822
  Transmission Date: 20241017
  Serious: Yes (Other)
  Sender: ASTRAZENECA
  Company Number: 2024A187450

PATIENT
  Age: 73 Year
  Sex: Female

DRUGS (4)
  1. DAPAGLIFLOZIN PROPANEDIOL [Suspect]
     Active Substance: DAPAGLIFLOZIN PROPANEDIOL
     Indication: Type 2 diabetes mellitus
     Route: 048
  2. LIPOGEN [Concomitant]
     Indication: Blood cholesterol
     Route: 048
  3. ETORICOXIB [Concomitant]
     Active Substance: ETORICOXIB
     Route: 048
  4. ADCO-ZILDEM SR [Concomitant]
     Indication: Hypertension
     Route: 048

REACTIONS (3)
  - Cardiac failure [Unknown]
  - Coronary artery disease [Unknown]
  - Hypertension [Unknown]
